FAERS Safety Report 26169305 (Version 1)
Quarter: 2025Q4

REPORT INFORMATION
  Report Type: Spontaneous
  Country: EU (occurrence: None)
  Receive Date: 20251217
  Receipt Date: 20251217
  Transmission Date: 20260118
  Serious: Yes (Other)
  Sender: UCB
  Company Number: EU-UCBSA-2025079367

PATIENT
  Age: 42 Year

DRUGS (3)
  1. LEVETIRACETAM [Suspect]
     Active Substance: LEVETIRACETAM
     Indication: Eclampsia
     Dosage: UNK
  2. LEVETIRACETAM [Suspect]
     Active Substance: LEVETIRACETAM
     Indication: Off label use
  3. MAGNESIUM SULFATE [Concomitant]
     Active Substance: MAGNESIUM SULFATE
     Indication: Eclampsia
     Dosage: UNK

REACTIONS (5)
  - Premature delivery [Unknown]
  - Caesarean section [Unknown]
  - Maternal exposure during pregnancy [Unknown]
  - Drug ineffective for unapproved indication [Unknown]
  - Off label use [Unknown]
